APPROVED DRUG PRODUCT: EFAVIRENZ
Active Ingredient: EFAVIRENZ
Strength: 600MG
Dosage Form/Route: TABLET;ORAL
Application: A078886 | Product #001 | TE Code: AB
Applicant: HETERO LABS LTD UNIT III
Approved: Apr 27, 2018 | RLD: No | RS: Yes | Type: RX